FAERS Safety Report 6332643-2 (Version None)
Quarter: 2009Q3

REPORT INFORMATION
  Report Type: 
  Country: None (occurrence: None)
  Receive Date: 20090828
  Receipt Date: 20090821
  Transmission Date: 20100115
  Serious: Yes (Death, Life-Threatening, Hospitalization)
  Sender: FDA-Public Use
  Company Number: FR-AVENTIS-200915921GDDC

PATIENT
  Age: 45 Year
  Sex: Male
  Weight: 63 kg

DRUGS (19)
  1. PLACEBO [Suspect]
     Indication: NON-SMALL CELL LUNG CANCER
     Route: 042
     Dates: start: 20090526, end: 20090526
  2. DOCETAXEL [Suspect]
     Indication: NON-SMALL CELL LUNG CANCER
     Route: 042
     Dates: start: 20090526, end: 20090526
  3. DOCETAXEL [Suspect]
     Route: 042
     Dates: start: 20090618, end: 20090618
  4. DAFALGAN                           /00020001/ [Concomitant]
     Dates: start: 20090403
  5. SKENAN [Concomitant]
     Dates: start: 20090429
  6. ACTISKENAN [Concomitant]
     Dates: start: 20090429
  7. XANAX [Concomitant]
     Dates: start: 20090403, end: 20090605
  8. GAVISCON [Concomitant]
     Dates: start: 20090403, end: 20090605
  9. PRIMPERAN                          /00041901/ [Concomitant]
  10. SERETIDE [Concomitant]
     Dates: start: 20090427, end: 20090605
  11. FORLAX [Concomitant]
     Dates: start: 20090403
  12. SOLUPRED                           /00016201/ [Concomitant]
  13. ZOPHREN                            /00955301/ [Concomitant]
  14. BI PROFENID [Concomitant]
     Dates: start: 20090524, end: 20090608
  15. SPECIAFOLDINE [Concomitant]
     Dates: start: 20090403, end: 20090526
  16. KETOPROFEN [Concomitant]
     Dates: start: 20090518, end: 20090523
  17. KETOPROFEN [Concomitant]
     Dates: start: 20090608
  18. CORTICOSTEROIDS [Concomitant]
  19. INEXIUM [Concomitant]
     Dates: start: 20090518

REACTIONS (2)
  - DISEASE PROGRESSION [None]
  - HAEMOTHORAX [None]
